FAERS Safety Report 9088553 (Version 1)
Quarter: 2013Q1

REPORT INFORMATION
  Report Type: Spontaneous
  Country: FR (occurrence: FR)
  Receive Date: 20130131
  Receipt Date: 20130131
  Transmission Date: 20140127
  Serious: Yes (Life-Threatening, Hospitalization)
  Sender: FDA-Public Use
  Company Number: FR-B.I. PHARMACEUTICALS,INC./RIDGEFIELD-2013-FF-00257FF

PATIENT
  Age: 84 Year
  Sex: Male

DRUGS (4)
  1. PRADAXA [Suspect]
     Dosage: 220 MG
     Route: 048
     Dates: start: 20121215, end: 20121226
  2. LASILIX [Concomitant]
     Dosage: 20 MG
     Route: 048
  3. CARDENSIEL [Concomitant]
     Dosage: 1.25 MG
     Route: 048
  4. TAHOR [Concomitant]
     Dosage: 40 MG
     Route: 048

REACTIONS (3)
  - Hepatitis acute [Not Recovered/Not Resolved]
  - Coagulopathy [Not Recovered/Not Resolved]
  - Renal failure acute [Not Recovered/Not Resolved]
